FAERS Safety Report 17186633 (Version 1)
Quarter: 2019Q4

REPORT INFORMATION
  Report Type: Report from Study
  Country: US (occurrence: US)
  Receive Date: 20191220
  Receipt Date: 20191220
  Transmission Date: 20200122
  Serious: Yes (Other)
  Sender: FDA-Public Use
  Company Number: US-JNJFOC-20191225391

PATIENT

DRUGS (4)
  1. NIVOLUMAB [Suspect]
     Active Substance: NIVOLUMAB
  2. REMICADE [Suspect]
     Active Substance: INFLIXIMAB
     Indication: NEOPLASM MALIGNANT
     Route: 042
  3. IPILIMUMAB [Suspect]
     Active Substance: IPILIMUMAB
     Indication: NEOPLASM MALIGNANT
     Route: 065
  4. PREDNISONE. [Suspect]
     Active Substance: PREDNISONE
     Indication: COLITIS
     Route: 065

REACTIONS (4)
  - Colitis [Unknown]
  - Off label use [Unknown]
  - Listeriosis [Unknown]
  - Product use in unapproved indication [Unknown]
